FAERS Safety Report 9433815 (Version 1)
Quarter: 2013Q3

REPORT INFORMATION
  Report Type: Report from Study
  Country: AR (occurrence: AR)
  Receive Date: 20130731
  Receipt Date: 20130731
  Transmission Date: 20140515
  Serious: Yes (Other)
  Sender: FDA-Public Use
  Company Number: PHHY2012AR043433

PATIENT
  Age: 85 Year
  Sex: Female

DRUGS (3)
  1. DIOVAN [Suspect]
     Indication: HYPERTENSION
     Dosage: 80 MG, DAILY
  2. DIOVAN [Suspect]
     Dosage: 2 TABLETS (80 MG), DAILY
  3. DIOVAN [Suspect]
     Dosage: 320 MG, BID
     Route: 048

REACTIONS (6)
  - Cardiac murmur [Unknown]
  - Arrhythmia [Unknown]
  - Blood pressure increased [Recovering/Resolving]
  - Tachycardia [Recovered/Resolved]
  - Hearing impaired [Unknown]
  - Cough [Unknown]
